FAERS Safety Report 8761406 (Version 5)
Quarter: 2012Q4

REPORT INFORMATION
  Report Type: 
  Country: US (occurrence: US)
  Receive Date: 20120829
  Receipt Date: 20121204
  Transmission Date: 20130627
  Serious: Yes (Hospitalization, Other)
  Sender: FDA-Public Use
  Company Number: US-PFIZER INC-2012207616

PATIENT
  Age: 50 Year
  Sex: Male
  Weight: 81.63 kg

DRUGS (6)
  1. VIAGRA [Suspect]
     Indication: ERECTILE DYSFUNCTION
     Dosage: UNK
     Route: 048
  2. VIAGRA [Suspect]
     Dosage: 100 mg, as needed
     Route: 048
     Dates: start: 201201
  3. DIAZEPAM [Concomitant]
     Indication: ANXIETY
     Dosage: 5 mg, 2x/day
  4. CIALIS [Concomitant]
     Indication: ERECTILE DYSFUNCTION
     Dosage: 10 mg, as needed
  5. LEVITRA [Concomitant]
     Indication: ERECTILE DYSFUNCTION
     Dosage: UNK
  6. PERCOCET [Concomitant]
     Dosage: UNK

REACTIONS (2)
  - Back disorder [Unknown]
  - Drug ineffective [Unknown]
